FAERS Safety Report 20392859 (Version 2)
Quarter: 2022Q1

REPORT INFORMATION
  Report Type: Spontaneous
  Country: NZ (occurrence: NZ)
  Receive Date: 20220128
  Receipt Date: 20220204
  Transmission Date: 20220423
  Serious: Yes (Death, Other)
  Sender: FDA-Public Use
  Company Number: NZ-TAKEDA-2021TUS048342

PATIENT
  Age: 4 Year
  Sex: Male

DRUGS (2)
  1. HYQVIA [Suspect]
     Active Substance: HUMAN IMMUNOGLOBULIN G\HYALURONIDASE RECOMBINANT HUMAN
     Indication: Selective IgM immunodeficiency
     Dosage: UNK
     Route: 065
     Dates: start: 20210210
  2. HYQVIA [Suspect]
     Active Substance: HUMAN IMMUNOGLOBULIN G\HYALURONIDASE RECOMBINANT HUMAN
     Dosage: 100 MILLIGRAM PER MILLILITRE
     Route: 065

REACTIONS (2)
  - Death [Fatal]
  - Off label use [Unknown]
